FAERS Safety Report 19012964 (Version 1)
Quarter: 2021Q1

REPORT INFORMATION
  Report Type: Spontaneous
  Country: IN (occurrence: IN)
  Receive Date: 20210315
  Receipt Date: 20210315
  Transmission Date: 20210420
  Serious: Yes (Hospitalization, Other)
  Sender: FDA-Public Use
  Company Number: IN-B.I. PHARMACEUTICALS,INC./RIDGEFIELD-2021-BI-088792

PATIENT
  Age: 51 Year
  Sex: Male

DRUGS (3)
  1. METHYLPREDNISOLONE. [Concomitant]
     Active Substance: METHYLPREDNISOLONE
  2. PRADAXA [Suspect]
     Active Substance: DABIGATRAN ETEXILATE MESYLATE
     Indication: PRODUCT USED FOR UNKNOWN INDICATION
     Route: 048
  3. METHYLPREDNISOLONE. [Concomitant]
     Active Substance: METHYLPREDNISOLONE
     Indication: PRODUCT USED FOR UNKNOWN INDICATION
     Dosage: 16 MILLIGRAM

REACTIONS (5)
  - Jaundice [Recovering/Resolving]
  - Chromaturia [Recovering/Resolving]
  - Pruritus [Recovering/Resolving]
  - Decreased appetite [Recovering/Resolving]
  - Drug-induced liver injury [Unknown]

NARRATIVE: CASE EVENT DATE: 20200730
